FAERS Safety Report 4577173-3 (Version None)
Quarter: 2005Q1

REPORT INFORMATION
  Report Type: 
  Country: None (occurrence: None)
  Receive Date: 20050208
  Receipt Date: 20050128
  Transmission Date: 20050727
  Serious: Yes (Hospitalization, Other)
  Sender: FDA-Public Use
  Company Number: 2005021844

PATIENT
  Age: 56 Year
  Sex: Female
  Weight: 63.5036 kg

DRUGS (3)
  1. SPIRONOLACTONE [Suspect]
     Indication: HEPATIC CIRRHOSIS
     Dosage: 100 MG (50 MG, TWICE DAILY), ORAL
     Route: 048
     Dates: start: 19930101
  2. PHYTONADIONE [Concomitant]
  3. PROPACET (DEXTROPOPOXYPHENE NAPSILATE, PARACETAMOL) [Concomitant]

REACTIONS (6)
  - CONFUSIONAL STATE [None]
  - GAIT DISTURBANCE [None]
  - PAIN [None]
  - PARKINSON'S DISEASE [None]
  - PYREXIA [None]
  - URINE ODOUR ABNORMAL [None]
